FAERS Safety Report 7452562-8 (Version None)
Quarter: 2011Q2

REPORT INFORMATION
  Report Type: 
  Country: None (occurrence: None)
  Receive Date: 20110502
  Receipt Date: 20110111
  Transmission Date: 20111010
  Serious: No
  Sender: FDA-Public Use
  Company Number: US-ASTRAZENECA-2010SE43696

PATIENT
  Sex: Female
  Weight: 96.6 kg

DRUGS (1)
  1. NEXIUM [Suspect]
     Indication: GASTROOESOPHAGEAL REFLUX DISEASE
     Dosage: TOTAL DAILY DOSAGE 80 MG, TWO TIMES A DAY
     Route: 048

REACTIONS (3)
  - FALL [None]
  - MALAISE [None]
  - HYPERTENSION [None]
